FAERS Safety Report 9219926 (Version 1)
Quarter: 2013Q2

REPORT INFORMATION
  Report Type: Spontaneous
  Country: FR (occurrence: FR)
  Receive Date: 20130409
  Receipt Date: 20130409
  Transmission Date: 20140414
  Serious: Yes (Hospitalization)
  Sender: FDA-Public Use
  Company Number: FR-SANOFI-AVENTIS-2013SA035742

PATIENT
  Age: 46 Year
  Sex: Female

DRUGS (3)
  1. LOVENOX [Suspect]
     Indication: PRODUCT USED FOR UNKNOWN INDICATION
     Route: 058
     Dates: start: 201206, end: 20120731
  2. ADEPAL [Suspect]
     Indication: ORAL CONTRACEPTION
     Route: 048
     Dates: end: 20120804
  3. VENLAFAXINE [Concomitant]
     Indication: DEPRESSION

REACTIONS (3)
  - Cerebral venous thrombosis [Recovered/Resolved]
  - Headache [Recovered/Resolved]
  - Vomiting [Recovered/Resolved]
